FAERS Safety Report 17857468 (Version 1)
Quarter: 2020Q2

REPORT INFORMATION
  Report Type: Report from Study
  Country: US (occurrence: US)
  Receive Date: 20200604
  Receipt Date: 20200604
  Transmission Date: 20200714
  Serious: No
  Sender: FDA-Public Use
  Company Number: NVSC2020US150953

PATIENT
  Sex: Male

DRUGS (1)
  1. TREPROSTINIL. [Suspect]
     Active Substance: TREPROSTINIL
     Indication: PRODUCT USED FOR UNKNOWN INDICATION
     Dosage: 29 NG/ML, CONT
     Route: 042
     Dates: start: 20200121

REACTIONS (4)
  - Decreased appetite [Unknown]
  - Abdominal discomfort [Unknown]
  - Weight decreased [Unknown]
  - Diarrhoea [Unknown]
